FAERS Safety Report 10751546 (Version 1)
Quarter: 2015Q1

REPORT INFORMATION
  Report Type: Report from Study
  Country: US (occurrence: US)
  Receive Date: 20150130
  Receipt Date: 20150130
  Transmission Date: 20150721
  Serious: Yes (Death, Hospitalization, Other)
  Sender: FDA-Public Use
  Company Number: US-BRISTOL-MYERS SQUIBB COMPANY-18854711

PATIENT
  Age: 69 Year
  Sex: Female

DRUGS (8)
  1. BLINDED IPILIMUMAB [Suspect]
     Active Substance: IPILIMUMAB
     Indication: NON-SMALL CELL LUNG CANCER
     Dosage: DOSE:6AUC
     Route: 042
     Dates: start: 20130107, end: 20130320
  2. PLACEBO [Suspect]
     Active Substance: UNSPECIFIED INGREDIENT
     Indication: NON-SMALL CELL LUNG CANCER
     Dosage: 175 MG/M2, QCYCLE
     Route: 042
     Dates: start: 20130107, end: 20130320
  3. BLINDED IPILIMUMAB [Suspect]
     Active Substance: IPILIMUMAB
     Indication: NON-SMALL CELL LUNG CANCER
     Dosage: 175 MG/M2, QCYCLE
     Route: 042
     Dates: start: 20130107, end: 20130320
  4. BLINDED CARBOPLATIN [Suspect]
     Active Substance: CARBOPLATIN
     Indication: NON-SMALL CELL LUNG CANCER
     Dosage: DOSE:6AUC
     Route: 042
     Dates: start: 20130107, end: 20130320
  5. BLINDED IPILIMUMAB [Suspect]
     Active Substance: IPILIMUMAB
     Indication: NON-SMALL CELL LUNG CANCER
     Dosage: 10 MG/KG, QCYCLE
     Route: 042
     Dates: start: 20130227, end: 20130320
  6. PLACEBO [Suspect]
     Active Substance: UNSPECIFIED INGREDIENT
     Indication: NON-SMALL CELL LUNG CANCER
     Dosage: 10 MG/KG, QCYCLE
     Route: 042
     Dates: start: 20130227, end: 20130320
  7. PLACEBO [Suspect]
     Active Substance: UNSPECIFIED INGREDIENT
     Indication: NON-SMALL CELL LUNG CANCER
     Dosage: DOSE:6AUC
     Route: 042
     Dates: start: 20130107, end: 20130320
  8. BLINDED PACLITAXEL [Suspect]
     Active Substance: PACLITAXEL
     Indication: NON-SMALL CELL LUNG CANCER
     Dosage: 175 MG/M2, QCYCLE
     Route: 042
     Dates: start: 20130107, end: 20130320

REACTIONS (3)
  - Malignant neoplasm progression [Fatal]
  - Colitis [Not Recovered/Not Resolved]
  - Hypokalaemia [Recovered/Resolved with Sequelae]

NARRATIVE: CASE EVENT DATE: 20130329
